FAERS Safety Report 10599023 (Version 1)
Quarter: 2014Q4

REPORT INFORMATION
  Report Type: Spontaneous
  Country: None (occurrence: None)
  Receive Date: 20141119
  Receipt Date: 20141119
  Transmission Date: 20150529
  Serious: No
  Sender: FDA-Public Use
  Company Number: 1000070787

PATIENT
  Age: 89 Year
  Sex: Female

DRUGS (9)
  1. ALBUTEROL SULFATE (ALBUTEROL SULFATE) (ALBUTEROL SULFATE) [Concomitant]
  2. TUDORZA PRESSAIR [Suspect]
     Active Substance: ACLIDINIUM BROMIDE
     Indication: CHRONIC OBSTRUCTIVE PULMONARY DISEASE
     Dosage: 800 MCG (400 MCG,2 IN 1 D),RESPIRATORY
     Route: 055
  3. OXYGEN (OXYGEN) (OXYGEN) [Concomitant]
  4. PREDNISONE (PREDNISONE) (PREDNISONE) [Concomitant]
     Active Substance: PREDNISONE
  5. TUDORZA PRESSAIR [Suspect]
     Active Substance: ACLIDINIUM BROMIDE
     Indication: CHRONIC OBSTRUCTIVE PULMONARY DISEASE
     Dosage: 800 MCG (400 MCG,2 IN 1 D),RESPIRATORY
     Route: 055
  6. VITAMIN D (VITAMIN D) (VITAMIN D) [Concomitant]
  7. SYMBICORT (BUDESONIDE W/FORMOTEROL FUMARATE) (BUDESONIDE W/FORMOTEROL FUMARATE) [Concomitant]
  8. XANAX (ALPRAZOLAM) (ALPRAZOLAM) [Concomitant]
  9. FISH OIL (FISH OIL) (FISH OIL) [Concomitant]

REACTIONS (6)
  - Eye pruritus [None]
  - Ocular hyperaemia [None]
  - Eye irritation [None]
  - Eye swelling [None]
  - Vision blurred [None]
  - Peripheral swelling [None]

NARRATIVE: CASE EVENT DATE: 2014
